FAERS Safety Report 9638191 (Version 1)
Quarter: 2013Q4

REPORT INFORMATION
  Report Type: Spontaneous
  Country: AU (occurrence: AU)
  Receive Date: 20131022
  Receipt Date: 20131022
  Transmission Date: 20140711
  Serious: Yes (Other)
  Sender: FDA-Public Use
  Company Number: PHHY2013AU118854

PATIENT
  Sex: Male

DRUGS (2)
  1. LAMISIL [Suspect]
  2. MICARDIS PLUS [Concomitant]

REACTIONS (2)
  - Neuralgia [Unknown]
  - Hypoaesthesia [Unknown]
